FAERS Safety Report 12012722 (Version 3)
Quarter: 2018Q1

REPORT INFORMATION
  Report Type: Other
  Country: CA (occurrence: CA)
  Receive Date: 20160205
  Receipt Date: 20180124
  Transmission Date: 20180508
  Serious: Yes (Hospitalization, Other)
  Sender: FDA-Public Use
  Company Number: CA-DUCHESNAY INC.-1047405

PATIENT
  Age: 33 Year
  Sex: Female

DRUGS (4)
  1. METOPROLOL. [Suspect]
     Active Substance: METOPROLOL
     Route: 048
     Dates: start: 2014
  2. REMICADE [Suspect]
     Active Substance: INFLIXIMAB
     Route: 042
     Dates: start: 2010
  3. DICLEGIS [Suspect]
     Active Substance: DOXYLAMINE SUCCINATE\PYRIDOXINE HYDROCHLORIDE
     Indication: NAUSEA
     Route: 048
     Dates: start: 2014, end: 2015
  4. EFFEXOR XR [Suspect]
     Active Substance: VENLAFAXINE HYDROCHLORIDE
     Route: 048
     Dates: start: 2014

REACTIONS (9)
  - Arthritis [Not Recovered/Not Resolved]
  - Nausea [Not Recovered/Not Resolved]
  - Post procedural infection [Recovered/Resolved]
  - Ventricular extrasystoles [Not Recovered/Not Resolved]
  - Caesarean section [Unknown]
  - Sinus tachycardia [Not Recovered/Not Resolved]
  - Perinatal depression [Not Recovered/Not Resolved]
  - Depression [Not Recovered/Not Resolved]
  - Incisional drainage [Recovered/Resolved]
